FAERS Safety Report 15930254 (Version 1)
Quarter: 2019Q1

REPORT INFORMATION
  Report Type: Report from Study
  Country: None (occurrence: US)
  Receive Date: 20190207
  Receipt Date: 20190207
  Transmission Date: 20190417
  Serious: Yes (Hospitalization, Other)
  Sender: FDA-Public Use
  Company Number: US-ABBVIE-18K-163-2570194-00

PATIENT
  Age: 73 Year
  Sex: Female
  Weight: 51.3 kg

DRUGS (1)
  1. HUMIRA [Suspect]
     Active Substance: ADALIMUMAB
     Indication: RHEUMATOID ARTHRITIS
     Dosage: CITRATE FREE FORMULATION
     Route: 058

REACTIONS (6)
  - Atrial fibrillation [Unknown]
  - Infection [Unknown]
  - Oxygen saturation decreased [Unknown]
  - Pneumonia [Recovering/Resolving]
  - Immunosuppression [Recovering/Resolving]
  - Apparent death [Unknown]

NARRATIVE: CASE EVENT DATE: 201811
